FAERS Safety Report 7009176-3 (Version None)
Quarter: 2010Q3

REPORT INFORMATION
  Report Type: 
  Country: None (occurrence: None)
  Receive Date: 20100923
  Receipt Date: 20100916
  Transmission Date: 20110219
  Serious: Yes (Hospitalization)
  Sender: FDA-Public Use
  Company Number: US-JNJFOC-20100906222

PATIENT
  Sex: Male
  Weight: 97.07 kg

DRUGS (14)
  1. DURAGESIC-100 [Suspect]
     Indication: PAIN
     Route: 062
  2. FENTANYL-100 [Suspect]
     Indication: PAIN
     Route: 062
  3. FENTANYL CITRATE [Suspect]
     Indication: PAIN
     Route: 062
  4. ALBUTEROL [Concomitant]
     Indication: ASTHMA
     Route: 055
  5. METOPROLOL [Concomitant]
     Indication: BLOOD PRESSURE
     Dosage: ONCE IN THE MORNING AND ONCE AT NIGHT
     Route: 048
  6. SINGULAIR [Concomitant]
     Route: 048
  7. BACLOFEN [Concomitant]
     Dosage: 45 MG/TABLET/ 10 MG/THREE TIMES PER DAY/1 1/2 TABLETS
     Route: 048
  8. DEXILANT [Concomitant]
     Indication: GASTROOESOPHAGEAL REFLUX DISEASE
     Route: 048
  9. RANITIDINE [Concomitant]
     Dosage: 1 PER NIGHT AS NEEDED
     Route: 048
  10. TRAZADOL [Concomitant]
     Indication: DEPRESSION
     Dosage: 1 AT BEDTIME
     Route: 048
  11. FOLIC ACID [Concomitant]
     Route: 048
  12. ASMANEX TWISTHALER [Concomitant]
     Indication: ASTHMA
     Route: 055
  13. PROAIR HFA [Concomitant]
     Route: 055
  14. XANAX [Concomitant]
     Indication: ANXIETY
     Route: 048

REACTIONS (8)
  - AMNESIA [None]
  - ARTERIAL THROMBOSIS [None]
  - CEREBROVASCULAR ACCIDENT [None]
  - DYSPNOEA [None]
  - INTRACRANIAL ANEURYSM [None]
  - PARALYSIS [None]
  - PRODUCT ADHESION ISSUE [None]
  - WRONG TECHNIQUE IN DRUG USAGE PROCESS [None]
